FAERS Safety Report 8406627-4 (Version None)
Quarter: 2012Q2

REPORT INFORMATION
  Report Type: 
  Country: None (occurrence: None)
  Receive Date: 20120604
  Receipt Date: 20120523
  Transmission Date: 20120825
  Serious: Yes (Hospitalization)
  Sender: FDA-Public Use
  Company Number: FR-UCBSA-057589

PATIENT
  Sex: Male

DRUGS (21)
  1. KEPPRA [Suspect]
     Dates: start: 20050101
  2. ANTI-EPILEPTICS [Concomitant]
     Indication: PARTIAL SEIZURES
     Route: 048
  3. VIMPAT [Suspect]
     Indication: PETIT MAL EPILEPSY
     Dosage: 200 MG
     Route: 048
     Dates: start: 20110601, end: 20110701
  4. ANTI-EPILEPTICS [Concomitant]
     Indication: PETIT MAL EPILEPSY
     Route: 048
  5. CLOBAZAM [Concomitant]
     Dosage: DAILY DOSE: 20 MG
  6. LAMICTAL [Concomitant]
     Dates: start: 20110601, end: 20110701
  7. VIMPAT [Suspect]
     Route: 048
     Dates: start: 20110701
  8. LAMICTAL [Concomitant]
     Dosage: DAILY DOSE: 300 MG
     Dates: start: 20110701
  9. LAMICTAL [Concomitant]
     Dosage: DAILY DOSE: 50 MG
  10. LAMICTAL [Concomitant]
     Dosage: DAILY DOSE: 200 MG
  11. CLOBAZAM [Concomitant]
     Dosage: 25 MG
     Dates: start: 20110601, end: 20110701
  12. CLOBAZAM [Concomitant]
     Dosage: DAILY DOSE: 10 MG
     Dates: start: 20110701
  13. PHENOBARBITAL TAB [Concomitant]
     Dosage: DAILY DOSE: 50 MG
  14. LAMICTAL [Concomitant]
     Dosage: DAILY DOSE: 100 MG
  15. VIMPAT [Suspect]
     Indication: PARTIAL SEIZURES
     Dosage: 200 MG
     Route: 048
     Dates: start: 20110601, end: 20110701
  16. CLOBAZAM [Concomitant]
     Dosage: DAILY DOSE: 30 MG
     Dates: start: 20050101
  17. DEPAKENE [Concomitant]
     Dosage: DAILY DOSE : 500 MG
     Dates: start: 20111201
  18. VIMPAT [Suspect]
     Route: 048
     Dates: start: 20110701
  19. PHENOBARBITAL TAB [Concomitant]
     Dosage: DAILY DOSE: 100 MG
     Dates: start: 20050101
  20. DEPAKENE [Concomitant]
  21. DEPAKENE [Concomitant]
     Dates: start: 20050101

REACTIONS (2)
  - CONVULSION [None]
  - BRAIN NEOPLASM [None]
